FAERS Safety Report 6279330-7 (Version None)
Quarter: 2009Q3

REPORT INFORMATION
  Report Type: 
  Country: None (occurrence: None)
  Receive Date: 20090723
  Receipt Date: 20081006
  Transmission Date: 20100115
  Serious: No
  Sender: FDA-Public Use
  Company Number: US-AMGEN-KDL311658

PATIENT

DRUGS (4)
  1. EPOGEN [Suspect]
     Indication: HIV INFECTION
  2. EPOGEN [Suspect]
     Indication: PRE-EXISTING DISEASE
  3. PEGASYS [Concomitant]
  4. COPEGUS [Concomitant]

REACTIONS (2)
  - ANAEMIA [None]
  - THERAPEUTIC RESPONSE DECREASED [None]
